FAERS Safety Report 4828471-7 (Version None)
Quarter: 2005Q4

REPORT INFORMATION
  Report Type: 
  Country: None (occurrence: None)
  Receive Date: 20051110
  Receipt Date: 20051101
  Transmission Date: 20060501
  Serious: Yes (Hospitalization, Other)
  Sender: FDA-Public Use
  Company Number: 2005084431

PATIENT
  Age: 88 Year
  Sex: Female
  Weight: 42 kg

DRUGS (4)
  1. HALCION [Suspect]
     Indication: INSOMNIA
     Dosage: ORAL
     Route: 048
     Dates: end: 20050528
  2. GRAMALIL       (TIAPRIDE HYDROCHLORIDE) [Concomitant]
  3. LEVOTHYROXINE SODIUM [Concomitant]
  4. YOKUKAN-SAN (HERBAL EXTRACTS NOS) [Concomitant]

REACTIONS (2)
  - BLOOD CREATINE PHOSPHOKINASE INCREASED [None]
  - FALL [None]
